FAERS Safety Report 8549425-3 (Version None)
Quarter: 2012Q3

REPORT INFORMATION
  Report Type: 
  Country: None (occurrence: None)
  Receive Date: 20120730
  Receipt Date: 20120726
  Transmission Date: 20120928
  Serious: Yes (Other)
  Sender: FDA-Public Use
  Company Number: US-PFIZER INC-2012181718

PATIENT
  Sex: Male

DRUGS (1)
  1. XANAX [Suspect]
     Dosage: UNK, TOOK FOR 2 WEEKS

REACTIONS (4)
  - DIABETES MELLITUS [None]
  - ANXIETY [None]
  - INSOMNIA [None]
  - DRUG INEFFECTIVE [None]
